FAERS Safety Report 7430981-3 (Version None)
Quarter: 2011Q2

REPORT INFORMATION
  Report Type: 
  Country: None (occurrence: None)
  Receive Date: 20110421
  Receipt Date: 20110419
  Transmission Date: 20111010
  Serious: Yes (Death, Life-Threatening, Hospitalization, Other)
  Sender: FDA-Public Use
  Company Number: GXKR2011DE01521

PATIENT
  Age: 90 Year
  Sex: Female
  Weight: 40 kg

DRUGS (5)
  1. CITALOPRAM 1A PHARMA [Suspect]
     Dosage: 20 MG, QD
     Dates: start: 20101216, end: 20101220
  2. REMERGIL [Suspect]
     Dosage: 15 MG, QD
     Route: 048
     Dates: start: 20101017, end: 20101018
  3. CITALOPRAM 1A PHARMA [Suspect]
     Dosage: 20 MG, QD
     Route: 048
     Dates: start: 20090801, end: 20101006
  4. CITALOPRAM HYDROBROMIDE [Suspect]
     Dosage: 20 MG, QD
     Route: 048
     Dates: start: 20090801, end: 20101006
  5. CITALOPRAM HYDROBROMIDE [Suspect]
     Dosage: 20 MG, QD
     Dates: start: 20101216, end: 20101220

REACTIONS (5)
  - RENAL FAILURE ACUTE [None]
  - CONVULSION [None]
  - DEATH [None]
  - LONG QT SYNDROME [None]
  - LOSS OF CONSCIOUSNESS [None]
